FAERS Safety Report 8259523-X (Version None)
Quarter: 2012Q2

REPORT INFORMATION
  Report Type: 
  Country: None (occurrence: None)
  Receive Date: 20120404
  Receipt Date: 20120330
  Transmission Date: 20120825
  Serious: No
  Sender: FDA-Public Use
  Company Number: US-TEVA-331266USA

PATIENT
  Sex: Male
  Weight: 86.26 kg

DRUGS (2)
  1. VITAMIN TAB [Concomitant]
  2. PROAIR HFA [Suspect]
     Indication: ASTHMA
     Dosage: 90 MICROGRAM;
     Route: 055

REACTIONS (1)
  - WEIGHT INCREASED [None]
